FAERS Safety Report 12964746 (Version 1)
Quarter: 2016Q4

REPORT INFORMATION
  Report Type: Spontaneous
  Country: US (occurrence: US)
  Receive Date: 20161122
  Receipt Date: 20161122
  Transmission Date: 20170207
  Serious: Yes (Other)
  Sender: FDA-Public Use
  Company Number: PHEH2016US030094

PATIENT
  Age: 63 Year
  Sex: Female

DRUGS (2)
  1. ZOMETA [Suspect]
     Active Substance: ZOLEDRONIC ACID
     Indication: OSTEOPENIA
     Dosage: UNK
     Route: 065
     Dates: start: 20161108
  2. ARIMIDEX [Concomitant]
     Active Substance: ANASTROZOLE
     Indication: PRODUCT USED FOR UNKNOWN INDICATION
     Dosage: UNK
     Route: 065

REACTIONS (9)
  - Pain in extremity [Unknown]
  - Back pain [Unknown]
  - Headache [Unknown]
  - Arthralgia [Unknown]
  - Chest pain [Unknown]
  - Neck pain [Unknown]
  - Dizziness [Unknown]
  - Bone pain [Unknown]
  - Product use issue [Unknown]

NARRATIVE: CASE EVENT DATE: 20161108
